FAERS Safety Report 20157566 (Version 1)
Quarter: 2021Q4

REPORT INFORMATION
  Report Type: Other
  Country: DE (occurrence: DE)
  Receive Date: 20211207
  Receipt Date: 20211207
  Transmission Date: 20220303
  Serious: No
  Sender: FDA-Public Use
  Company Number: None

PATIENT
  Age: 70 Year
  Sex: Male

DRUGS (13)
  1. PYRIDOSTIGMINE BROMIDE [Interacting]
     Active Substance: PYRIDOSTIGMINE BROMIDE
     Indication: Product used for unknown indication
     Dosage: 60 MILLIGRAM, TID
     Route: 065
     Dates: end: 20210901
  2. PYRIDOSTIGMINE BROMIDE [Interacting]
     Active Substance: PYRIDOSTIGMINE BROMIDE
     Dosage: 30 MILLIGRAM, TID
     Route: 065
     Dates: start: 20210902
  3. TADALAFIL [Interacting]
     Active Substance: TADALAFIL
     Indication: Product used for unknown indication
     Dosage: 5 MILLIGRAM, QD
     Route: 065
  4. LERCANIDIPINE [Interacting]
     Active Substance: LERCANIDIPINE
     Indication: Cardiac disorder
     Dosage: 10 MILLIGRAM, BID
     Route: 065
  5. CANDESARTAN CILEXETIL [Interacting]
     Active Substance: CANDESARTAN CILEXETIL
     Indication: Cardiac disorder
     Dosage: 16 MILLIGRAM, BID
     Route: 065
  6. BISOPROLOL [Interacting]
     Active Substance: BISOPROLOL
     Indication: Product used for unknown indication
     Dosage: 5 MILLIGRAM, BID
     Route: 065
  7. PANTOPRAZOLE [Interacting]
     Active Substance: PANTOPRAZOLE
     Indication: Product used for unknown indication
     Dosage: 40 MILLIGRAM, QD
     Route: 065
  8. EPLERENONE [Interacting]
     Active Substance: EPLERENONE
     Indication: Cardiac disorder
     Dosage: 25 MILLIGRAM, QD
     Route: 065
  9. PREDNISOLONE [Interacting]
     Active Substance: PREDNISOLONE
     Indication: Product used for unknown indication
     Dosage: 2 MILLIGRAM, QD (DOSE GRADUALLY REDUCED FROM 60 MG TO 2 MG)
     Route: 065
  10. PREDNISOLONE [Interacting]
     Active Substance: PREDNISOLONE
     Dosage: UNK, DOSE DECREASED
     Route: 065
  11. XARELTO [Interacting]
     Active Substance: RIVAROXABAN
     Indication: Cardiac disorder
     Dosage: 20 MILLIGRAM, QD
     Route: 065
  12. VITAMIN D3 [Interacting]
     Active Substance: CHOLECALCIFEROL
     Indication: Product used for unknown indication
     Dosage: UNK
     Route: 065
  13. NITRENDIPINE [Interacting]
     Active Substance: NITRENDIPINE
     Indication: Product used for unknown indication
     Dosage: UNK, PRN
     Route: 065

REACTIONS (14)
  - Fear of death [Recovered/Resolved]
  - Discomfort [Recovering/Resolving]
  - Nausea [Not Recovered/Not Resolved]
  - Retching [Recovering/Resolving]
  - Restlessness [Recovering/Resolving]
  - Depressed mood [Recovering/Resolving]
  - Anxiety [Recovered/Resolved]
  - Asthenia [Not Recovered/Not Resolved]
  - Helplessness [Recovering/Resolving]
  - Initial insomnia [Recovering/Resolving]
  - Psychiatric symptom [Recovering/Resolving]
  - Blood pressure increased [Not Recovered/Not Resolved]
  - Off label use [Unknown]
  - Drug interaction [Unknown]

NARRATIVE: CASE EVENT DATE: 20210801
